FAERS Safety Report 25678205 (Version 2)
Quarter: 2025Q3

REPORT INFORMATION
  Report Type: Spontaneous
  Country: US (occurrence: US)
  Receive Date: 20250813
  Receipt Date: 20250814
  Transmission Date: 20251021
  Serious: Yes (Other)
  Sender: MERCK SHARP & DOHME LLC
  Company Number: US-009507513-2316866

PATIENT

DRUGS (1)
  1. WELIREG [Suspect]
     Active Substance: BELZUTIFAN

REACTIONS (2)
  - Disseminated intravascular coagulation [Unknown]
  - Cytopenia [Unknown]
